FAERS Safety Report 24588620 (Version 1)
Quarter: 2024Q4

REPORT INFORMATION
  Report Type: Spontaneous
  Country: AT (occurrence: AT)
  Receive Date: 20241107
  Receipt Date: 20241107
  Transmission Date: 20250115
  Serious: Yes (Life-Threatening)
  Sender: DAIICHI
  Company Number: None

PATIENT
  Age: 73 Year
  Sex: Female

DRUGS (1)
  1. EDOXABAN TOSYLATE [Suspect]
     Active Substance: EDOXABAN TOSYLATE
     Indication: Atrial fibrillation
     Dosage: 1 DOSAGE FORM, QD (1-0-0)
     Route: 048
     Dates: start: 20240418, end: 20241013

REACTIONS (1)
  - Parietal lobe stroke [Recovered/Resolved]

NARRATIVE: CASE EVENT DATE: 20241013
